FAERS Safety Report 6403943-2 (Version None)
Quarter: 2009Q4

REPORT INFORMATION
  Report Type: 
  Country: None (occurrence: None)
  Receive Date: 20091016
  Receipt Date: 20090707
  Transmission Date: 20100525
  Serious: No
  Sender: FDA-Public Use
  Company Number: US-ALEXION-A200900525

PATIENT
  Sex: Female

DRUGS (13)
  1. SOLIRIS [Suspect]
     Indication: PAROXYSMAL NOCTURNAL HAEMOGLOBINURIA
     Dosage: UNK
     Route: 042
  2. SHINGLES VACCINE [Concomitant]
     Dosage: UNK
     Dates: start: 20090616, end: 20090616
  3. FOLIC ACID [Concomitant]
     Dosage: 1 MG, TID
  4. LEXAPRO [Concomitant]
     Dosage: 20 MG, QD
  5. TRAVATAN [Concomitant]
     Dosage: 1 GTT, EACH EYE, QD
  6. FOSAMAX [Concomitant]
     Dosage: 35 MG, WEEKLY
  7. HYDROCHLOROTHIAZIDE [Concomitant]
     Dosage: 25 MG, QD, PM
  8. CYCLOSPORINE [Concomitant]
     Dosage: 25 MG, BID
  9. TYLENOL (CAPLET) [Concomitant]
     Dosage: 1 TAB, PRN
  10. TYLENOL (CAPLET) [Concomitant]
     Dosage: 500 MG 1 TAB, PRN
  11. OSCAL                              /00108001/ [Concomitant]
     Dosage: 500 MG, UNK
  12. VITAMIN A [Concomitant]
     Dosage: 200 IU, BID
  13. ASPIRIN [Concomitant]
     Dosage: 81 MG, QD

REACTIONS (2)
  - HAEMOGLOBIN DECREASED [None]
  - PYREXIA [None]
